FAERS Safety Report 20306365 (Version 1)
Quarter: 2022Q1

REPORT INFORMATION
  Report Type: Spontaneous
  Country: US (occurrence: None)
  Receive Date: 20220106
  Receipt Date: 20220106
  Transmission Date: 20220423
  Serious: Yes (Life-Threatening, Hospitalization, Disabling, Other)
  Sender: FDA-Public Use
  Company Number: None

PATIENT
  Age: 62 Year
  Sex: Female
  Weight: 68 kg

DRUGS (1)
  1. CARFILZOMIB [Suspect]
     Active Substance: CARFILZOMIB
     Indication: Plasma cell myeloma
     Route: 041
     Dates: start: 20211228, end: 20211228

REACTIONS (10)
  - Nausea [None]
  - Vomiting [None]
  - Hypoxia [None]
  - Oxygen saturation decreased [None]
  - Respiratory distress [None]
  - Blood pressure decreased [None]
  - Pyrexia [None]
  - Leukocytosis [None]
  - Procalcitonin increased [None]
  - Blood lactic acid increased [None]

NARRATIVE: CASE EVENT DATE: 20211229
